FAERS Safety Report 9115684 (Version 3)
Quarter: 2013Q1

REPORT INFORMATION
  Report Type: Spontaneous
  Country: US (occurrence: US)
  Receive Date: 20130225
  Receipt Date: 20130327
  Transmission Date: 20140127
  Serious: No
  Sender: FDA-Public Use
  Company Number: US-PFIZER INC-2013064086

PATIENT
  Age: 61 Year
  Sex: Female
  Weight: 85.35 kg

DRUGS (23)
  1. EFFEXOR XR [Suspect]
     Indication: ARTHRALGIA
     Dosage: 75 MG, 2X/DAY
     Route: 048
     Dates: start: 2005
  2. EFFEXOR XR [Suspect]
     Dosage: 150 MG, 1X/DAY
     Route: 048
  3. EFFEXOR XR [Suspect]
     Dosage: 75 MG, 2X/DAY
     Route: 048
  4. NICOTROL [Concomitant]
     Dosage: UNK (ONE PUFF), 1X/DAY
  5. LIPITOR [Concomitant]
     Dosage: 40 MG, 1X/DAY AT NIGHT
     Route: 048
  6. NEXIUM [Concomitant]
     Dosage: 40 MG, 1X/DAY
  7. SYMBICORT [Concomitant]
     Dosage: 2 PUFFS 2X/DAY
     Route: 055
  8. SYMBICORT [Concomitant]
     Dosage: 160/4.5, AS DIRECTED
  9. DIOVAN HCT [Concomitant]
     Dosage: VALSARTAN 320MG AND HYDROCHLOROTHIAZIDE 12.5MG, 1X/DAY
     Route: 048
  10. PROVENTIL HFA [Concomitant]
     Dosage: UNK (2 PUFFS), AS NEEDED 4X/DAY
     Route: 055
  11. CLARINEX [Concomitant]
     Indication: HYPERSENSITIVITY
     Dosage: 5 MG, AS NEEDED 4X/DAY
  12. VENTOLINE HFA [Concomitant]
     Dosage: 90 UG, 2 PUFFS, 4 TIMES A DAY, AS NEEDED
  13. VENTOLINE HFA [Concomitant]
     Dosage: 90 UG, AS DIRECTED
  14. XANAX [Concomitant]
     Dosage: 0.5 MG, 1 DAILY AND 3 HS
     Route: 048
  15. ASPIRIN [Concomitant]
     Indication: PROPHYLAXIS
     Dosage: UNK, 1X/DAY
     Route: 048
  16. DOCUSATE SODIUM [Concomitant]
     Dosage: 100 MG, ALTERNATE 1 DAILY, WITH 2 DAILY
     Route: 048
  17. FISH OIL [Concomitant]
     Dosage: 1000 MG, 2X/DAY
     Route: 048
  18. GARLIC [Concomitant]
     Dosage: ONE TABLET, DAILY
     Route: 048
  19. IBUPROFEN [Concomitant]
     Dosage: 800 MG, 2X/DAY
     Route: 048
  20. VICODIN [Concomitant]
     Dosage: 5 MG-500 MG, 1/2 TO 1 QDAY PRN, USE SPARINGLY
     Route: 048
  21. VITAMIN C [Concomitant]
     Dosage: 1000 MG, 1X/DAY
     Route: 048
  22. CALCIUM CARBONATE [Concomitant]
     Dosage: 600 MG, 2X/DAY
     Route: 048
  23. CENTRUM [Concomitant]
     Dosage: 1 TABLET, DAILY
     Route: 048

REACTIONS (10)
  - Drug intolerance [Unknown]
  - Dizziness [Recovered/Resolved]
  - Pain [Unknown]
  - Drug dispensing error [Unknown]
  - Off label use [Not Recovered/Not Resolved]
  - Hyperhidrosis [Recovered/Resolved]
  - Movement disorder [Unknown]
  - Blood pressure increased [Unknown]
  - Back pain [Unknown]
  - Nervousness [Unknown]
